FAERS Safety Report 10519681 (Version 1)
Quarter: 2014Q4

REPORT INFORMATION
  Report Type: Spontaneous
  Country: US (occurrence: US)
  Receive Date: 20141015
  Receipt Date: 20141015
  Transmission Date: 20150528
  Serious: No
  Sender: FDA-Public Use
  Company Number: US-PFIZER INC-2014279970

PATIENT
  Age: 87 Year
  Sex: Female
  Weight: 58.1 kg

DRUGS (2)
  1. CLONIDINE. [Concomitant]
     Active Substance: CLONIDINE
     Indication: HYPERTENSION
     Dosage: 0.1 LITTLE PILL, ONCE PER DAY BEFORE BED BEFORE BED
     Route: 048
  2. SPIRONOLACTONE. [Suspect]
     Active Substance: SPIRONOLACTONE
     Indication: FUNGAL INFECTION
     Dosage: 25 MG, 1X/DAY
     Route: 048
     Dates: start: 20140804

REACTIONS (3)
  - Drug ineffective for unapproved indication [Not Recovered/Not Resolved]
  - Weight decreased [Not Recovered/Not Resolved]
  - Body height decreased [Unknown]
